FAERS Safety Report 24915210 (Version 1)
Quarter: 2025Q1

REPORT INFORMATION
  Report Type: Spontaneous
  Country: IN (occurrence: IN)
  Receive Date: 20250203
  Receipt Date: 20250203
  Transmission Date: 20250409
  Serious: Yes (Life-Threatening, Hospitalization, Other)
  Sender: CIPLA
  Company Number: IN-MLMSERVICE-20250114-PI354119-00071-1

PATIENT

DRUGS (3)
  1. BUDESONIDE [Suspect]
     Active Substance: BUDESONIDE
     Indication: Rhinitis allergic
     Dosage: 400 MICROGRAM, QD (FOR INITIAL 3 MONTHS)
     Route: 045
  2. BUDESONIDE\FORMOTEROL [Suspect]
     Active Substance: BUDESONIDE\FORMOTEROL
     Indication: Asthma
     Dosage: 1 DOSAGE FORM, QD (800/24 MICROGRAM PER DAY-USING A DRY POWDER INHALER VIA THE ROTAHALER DEVICE)
  3. BUDESONIDE\FORMOTEROL [Suspect]
     Active Substance: BUDESONIDE\FORMOTEROL
     Indication: Rhinitis allergic

REACTIONS (5)
  - Bronchopulmonary aspergillosis allergic [Recovered/Resolved]
  - Bronchopulmonary aspergillosis [Recovered/Resolved]
  - Pseudomonas infection [Recovered/Resolved]
  - Aspergillus infection [Recovered/Resolved]
  - Respiratory failure [Recovered/Resolved]
